FAERS Safety Report 21903495 (Version 1)
Quarter: 2023Q1

REPORT INFORMATION
  Report Type: Spontaneous
  Country: US (occurrence: None)
  Receive Date: 20230123
  Receipt Date: 20230123
  Transmission Date: 20230417
  Serious: No
  Sender: FDA-Public Use
  Company Number: None

PATIENT
  Age: 51 Year
  Sex: Female
  Weight: 96.16 kg

DRUGS (1)
  1. COSENTYX [Suspect]
     Active Substance: SECUKINUMAB
     Indication: Ankylosing spondylitis
     Dosage: FREQUENCY : WEEKLY;?INJECT 300MG (2 PENS) SUBCUTANEOUSLY EVERY WEEK FOR?5 WEEKS AS DIRECTED.?
     Route: 058
     Dates: start: 202211

REACTIONS (2)
  - Illness [None]
  - Therapy interrupted [None]
